FAERS Safety Report 15420320 (Version 1)
Quarter: 2018Q3

REPORT INFORMATION
  Report Type: Spontaneous
  Country: US (occurrence: US)
  Receive Date: 20180924
  Receipt Date: 20180924
  Transmission Date: 20181010
  Serious: Yes (Death, Other)
  Sender: FDA-Public Use
  Company Number: US-IMPAX LABORATORIES, INC-2018-IPXL-03065

PATIENT
  Age: 4 Month
  Sex: Male

DRUGS (2)
  1. PROPRANOLOL HYDROCHLORIDE IR [Suspect]
     Active Substance: PROPRANOLOL HYDROCHLORIDE
     Indication: ATRIAL TACHYCARDIA
     Dosage: UNK
     Route: 065
  2. PROPRANOLOL HYDROCHLORIDE IR [Suspect]
     Active Substance: PROPRANOLOL HYDROCHLORIDE
     Indication: PRODUCT USE IN UNAPPROVED INDICATION

REACTIONS (4)
  - Systemic infection [Fatal]
  - Product use issue [Unknown]
  - Cellulitis [Unknown]
  - Drug administered to patient of inappropriate age [Unknown]
